FAERS Safety Report 6424902-X (Version None)
Quarter: 2009Q4

REPORT INFORMATION
  Report Type: 
  Country: None (occurrence: None)
  Receive Date: 20091103
  Receipt Date: 20091021
  Transmission Date: 20100525
  Serious: Yes (Hospitalization, Other)
  Sender: FDA-Public Use
  Company Number: US-ELI_LILLY_AND_COMPANY-US200910007412

PATIENT
  Sex: Female

DRUGS (12)
  1. FORTEO [Suspect]
     Dosage: UNK, UNK
     Dates: start: 20090710
  2. LUNESTA [Concomitant]
  3. VITAMIN D [Concomitant]
  4. CITRACAL + D [Concomitant]
  5. VITAMIN B COMPLEX CAP [Concomitant]
  6. ASPIRIN [Concomitant]
  7. LEVOTHYROXINE SODIUM [Concomitant]
  8. LEXAPRO [Concomitant]
  9. NEXIUM [Concomitant]
  10. FLOVENT [Concomitant]
  11. COMBIVENT [Concomitant]
  12. DIGOXIN [Concomitant]

REACTIONS (2)
  - FALL [None]
  - FEMUR FRACTURE [None]
